FAERS Safety Report 4544847-X (Version None)
Quarter: 2005Q1

REPORT INFORMATION
  Report Type: 
  Country: None (occurrence: None)
  Receive Date: 20050104
  Receipt Date: 20041223
  Transmission Date: 20050727
  Serious: Yes (Hospitalization)
  Sender: FDA-Public Use
  Company Number: DE-2004-033043

PATIENT
  Age: 16 Year
  Sex: Female

DRUGS (1)
  1. LEVONORGESTREL AND ETHINYL ESTRADIOL [Suspect]
     Dosage: ORAL
     Route: 048
     Dates: end: 20041005

REACTIONS (3)
  - BLOOD CHOLESTEROL INCREASED [None]
  - PANCREATIC DUCT OBSTRUCTION [None]
  - PANCREATITIS ACUTE [None]
